FAERS Safety Report 16008898 (Version 1)
Quarter: 2019Q1

REPORT INFORMATION
  Report Type: Spontaneous
  Country: US (occurrence: US)
  Receive Date: 20190226
  Receipt Date: 20190226
  Transmission Date: 20190418
  Serious: No
  Sender: FDA-Public Use
  Company Number: US-ACTELION-A-NJ2019-185087

PATIENT
  Age: 55 Year
  Sex: Female

DRUGS (3)
  1. OPSUMIT [Suspect]
     Active Substance: MACITENTAN
     Indication: PULMONARY ARTERIAL HYPERTENSION
     Dosage: UNK
     Route: 048
     Dates: end: 201812
  2. TREPROSTINIL SODIUM [Suspect]
     Active Substance: TREPROSTINIL SODIUM
     Indication: PULMONARY ARTERIAL HYPERTENSION
     Dosage: 65 NG/KG, PER MIN
     Route: 042
     Dates: start: 20181113
  3. TREPROSTINIL SODIUM [Suspect]
     Active Substance: TREPROSTINIL SODIUM
     Dosage: 71 NG/KG, PER MIN
     Route: 042
     Dates: start: 20181114

REACTIONS (9)
  - Urinary tract infection [Unknown]
  - Peripheral swelling [Unknown]
  - Rhinorrhoea [Unknown]
  - Nausea [Unknown]
  - Headache [Unknown]
  - Diarrhoea [Unknown]
  - Flushing [Unknown]
  - Dizziness [Unknown]
  - Weight increased [Unknown]

NARRATIVE: CASE EVENT DATE: 20181113
